FAERS Safety Report 5638282-0 (Version None)
Quarter: 2008Q1

REPORT INFORMATION
  Report Type: 
  Country: None (occurrence: None)
  Receive Date: 20080226
  Receipt Date: 20080218
  Transmission Date: 20080703
  Serious: Yes (Other)
  Sender: FDA-Public Use
  Company Number: JP-BAYER-200810285BYL

PATIENT
  Age: 48 Year
  Sex: Female

DRUGS (2)
  1. CIPROXAN-I.V. [Suspect]
     Route: 041
     Dates: start: 20061001, end: 20061001
  2. ASPIRIN [Suspect]
     Route: 048
     Dates: start: 20061001, end: 20061101

REACTIONS (1)
  - TOXIC EPIDERMAL NECROLYSIS [None]
